FAERS Safety Report 16877991 (Version 2)
Quarter: 2020Q3

REPORT INFORMATION
  Report Type: Report from Study
  Country: AU (occurrence: AU)
  Receive Date: 20191002
  Receipt Date: 20200728
  Transmission Date: 20201102
  Serious: Yes (Hospitalization)
  Sender: FDA-Public Use
  Company Number: AU-JNJFOC-20190930400

PATIENT
  Age: 48 Year
  Sex: Female

DRUGS (1)
  1. SIMPONI [Suspect]
     Active Substance: GOLIMUMAB
     Indication: COLITIS ULCERATIVE
     Route: 058

REACTIONS (7)
  - Swelling [Unknown]
  - Asthenia [Unknown]
  - Haematochezia [Unknown]
  - Vision blurred [Unknown]
  - Peripheral swelling [Unknown]
  - Dizziness [Unknown]
  - Neck mass [Unknown]

NARRATIVE: CASE EVENT DATE: 20190722
